FAERS Safety Report 4625355-4 (Version None)
Quarter: 2005Q2

REPORT INFORMATION
  Report Type: 
  Country: None (occurrence: None)
  Receive Date: 20050401
  Receipt Date: 20050325
  Transmission Date: 20051028
  Serious: Yes (Hospitalization)
  Sender: FDA-Public Use
  Company Number: FR-GLAXOSMITHKLINE-B0375934A

PATIENT
  Age: 55 Year
  Sex: Female

DRUGS (5)
  1. AUGMENTIN '125' [Suspect]
     Indication: BRONCHITIS
     Dosage: 1UNIT SINGLE DOSE
     Route: 048
     Dates: start: 19971119, end: 19971119
  2. EUPHYLLINE [Concomitant]
     Indication: ASTHMA
     Route: 065
     Dates: start: 19890101
  3. SEREVENT [Concomitant]
     Indication: ASTHMA
     Route: 065
     Dates: start: 19890101
  4. BECONASE [Concomitant]
     Indication: ASTHMA
     Route: 065
     Dates: start: 19890101
  5. ZYRTEC [Concomitant]
     Indication: ASTHMA
     Route: 065
     Dates: start: 19890101

REACTIONS (5)
  - ANGIONEUROTIC OEDEMA [None]
  - ANXIETY [None]
  - BRONCHOSPASM [None]
  - RESPIRATORY DISORDER [None]
  - URTICARIA GENERALISED [None]
